FAERS Safety Report 24132813 (Version 1)
Quarter: 2024Q3

REPORT INFORMATION
  Report Type: Spontaneous
  Country: US (occurrence: None)
  Receive Date: 20240723
  Receipt Date: 20240723
  Transmission Date: 20241016
  Serious: Yes (Hospitalization)
  Sender: Public
  Company Number: None

PATIENT
  Age: 85 Year
  Sex: Male

DRUGS (6)
  1. MYCOPHENOLATE MOFETIL [Suspect]
     Active Substance: MYCOPHENOLATE MOFETIL
     Indication: Drug therapy
     Dosage: MYCOPHENOLATE DOSE: TAKE 2 TABLETS BY MOUTH IN THE MORNING AND 1 TABLET AT NIGHT ?
     Route: 048
     Dates: start: 201607
  2. MYCOPHENOLATE MOFETIL [Suspect]
     Active Substance: MYCOPHENOLATE MOFETIL
     Indication: Renal transplant
  3. NEORAL [Suspect]
     Active Substance: CYCLOSPORINE
     Indication: Drug therapy
     Dosage: NEORAL DOSE: TAKE 3 CAPSULES BY MOUTH IN THE MORNING AND 2 CAPSULES IN THE EVENING.??
     Route: 048
     Dates: start: 201607
  4. NEORAL [Suspect]
     Active Substance: CYCLOSPORINE
     Indication: Renal transplant
  5. HEPARIN SODIUM [Concomitant]
     Active Substance: HEPARIN SODIUM
  6. CEFTRIAXONE [Concomitant]
     Active Substance: CEFTRIAXONE\CEFTRIAXONE SODIUM

REACTIONS (3)
  - Diarrhoea [None]
  - SARS-CoV-2 test positive [None]
  - Escherichia infection [None]

NARRATIVE: CASE EVENT DATE: 20240710
